FAERS Safety Report 11679093 (Version 1)
Quarter: 2015Q4

REPORT INFORMATION
  Report Type: Spontaneous
  Country: GB (occurrence: GB)
  Receive Date: 20151028
  Receipt Date: 20151028
  Transmission Date: 20160304
  Serious: Yes (Other)
  Sender: FDA-Public Use
  Company Number: GB-ALLERGAN-1522246US

PATIENT
  Age: 48 Year
  Sex: Female
  Weight: 65.77 kg

DRUGS (8)
  1. OMEPRAZOL [Concomitant]
     Active Substance: OMEPRAZOLE
  2. OESTROGEL [Concomitant]
     Active Substance: ESTRADIOL
  3. TROSPIUM CHLORIDE UNK [Suspect]
     Active Substance: TROSPIUM CHLORIDE
     Indication: HYPERTONIC BLADDER
     Dosage: 60 MG, QD
     Route: 048
     Dates: start: 20150919, end: 20151008
  4. CALCEOS [Concomitant]
     Active Substance: CALCIUM CARBONATE\CHOLECALCIFEROL
  5. HUMIRA [Concomitant]
     Active Substance: ADALIMUMAB
  6. PENTASA [Concomitant]
     Active Substance: MESALAMINE
  7. PREDNISOLONE. [Concomitant]
     Active Substance: PREDNISOLONE
  8. LAXIDO [Concomitant]
     Active Substance: POLYETHYLENE GLYCOL 3350\POTASSIUM CHLORIDE\SODIUM BICARBONATE\SODIUM CHLORIDE

REACTIONS (5)
  - Nausea [Recovering/Resolving]
  - Abdominal pain [Recovering/Resolving]
  - Dry eye [Recovering/Resolving]
  - Malaise [Recovering/Resolving]
  - Dyspepsia [Recovering/Resolving]

NARRATIVE: CASE EVENT DATE: 20150920
